FAERS Safety Report 7644513-8 (Version None)
Quarter: 2011Q3

REPORT INFORMATION
  Report Type: 
  Country: None (occurrence: None)
  Receive Date: 20110729
  Receipt Date: 20110720
  Transmission Date: 20111222
  Serious: Yes (Hospitalization, Other)
  Sender: FDA-Public Use
  Company Number: BR-SANOFI-AVENTIS-2011SA047666

PATIENT
  Sex: Male

DRUGS (8)
  1. LOSARTAN POTASSIUM [Concomitant]
     Dates: start: 20080101
  2. THIAMINE HYDROCHLORIDE [Suspect]
  3. METOPROLOL SUCCINATE [Concomitant]
     Dates: start: 20080101
  4. LEXAPRO [Suspect]
  5. ASPIRIN [Suspect]
     Indication: INFARCTION
     Dates: start: 20050101
  6. HUMALOG [Concomitant]
     Dates: start: 20100101
  7. LANTUS [Suspect]
     Route: 058
     Dates: start: 20050101
  8. METFORMIN HCL [Suspect]

REACTIONS (3)
  - ISCHAEMIC STROKE [None]
  - HYPERCHOLESTEROLAEMIA [None]
  - BLOOD THYROID STIMULATING HORMONE INCREASED [None]
